FAERS Safety Report 10388986 (Version 1)
Quarter: 2014Q1

REPORT INFORMATION
  Report Type: Spontaneous
  Country: US (occurrence: None)
  Receive Date: 20140306
  Receipt Date: 20140306
  Transmission Date: 20141002
  Serious: Yes (Other)
  Sender: FDA-Public Use
  Company Number: 163-21880-13112737

PATIENT
  Age: 55 Year
  Sex: Female
  Weight: 64.86 kg

DRUGS (17)
  1. REVLIMID (LENALIDOMIDE) (5 MILLIGRAM, CAPSULES) [Suspect]
     Indication: PLASMA CELL MYELOMA
     Route: 048
     Dates: start: 20120831
  2. BORTEZOMIB (BORTEZOMIB) [Suspect]
     Indication: PRODUCT USED FOR UNKNOWN INDICATION
     Dates: start: 20120612, end: 20121005
  3. LEVOTHROID (LEVOTHYROXINE SODIUM) [Concomitant]
  4. MAGNESIUM (MAGNESIUM) [Concomitant]
  5. OMEPRAZOLE (OMEPRAZOLE) [Concomitant]
  6. ACYCLOVIR (ACICLOVIR) [Concomitant]
  7. SODIUM BICARBONATE (SODIUM BICARBONATE) [Concomitant]
  8. BENZONATATE (BENZONATATE) [Concomitant]
  9. DEXAMETHASONE (DEXAMETHASONE) [Concomitant]
  10. ALLOPURINOL (ALLOPURINOL) [Concomitant]
  11. AMBIEN (ZOLPIDEM TARTRATE) [Concomitant]
  12. BACTRIM DS (BACTRIM) [Concomitant]
  13. FLUCONAZOLE (FLUCONAZOLE) [Concomitant]
  14. LIPITOR (ATORVASTATIN) [Concomitant]
  15. LISINOPRIL (LISINOPRIL) [Concomitant]
  16. MIRALAX (MACROGOL) [Concomitant]
  17. PROCRIT (ERYTHROPOIETIN) [Concomitant]

REACTIONS (7)
  - Clostridium difficile infection [None]
  - Neutropenia [None]
  - Urinary tract infection [None]
  - Eye infection [None]
  - Ear infection [None]
  - Upper respiratory tract infection [None]
  - White blood cell count decreased [None]
